FAERS Safety Report 13972408 (Version 2)
Quarter: 2017Q4

REPORT INFORMATION
  Report Type: Spontaneous
  Country: FR (occurrence: FR)
  Receive Date: 20170915
  Receipt Date: 20171030
  Transmission Date: 20180321
  Serious: Yes (Hospitalization)
  Sender: FDA-Public Use
  Company Number: FR-SA-2017SA170042

PATIENT
  Age: 80 Year
  Sex: Male
  Weight: 98 kg

DRUGS (7)
  1. ELIGARD [Concomitant]
     Active Substance: LEUPROLIDE ACETATE
  2. HYTACAND [Concomitant]
     Active Substance: CANDESARTAN CILEXETIL\HYDROCHLOROTHIAZIDE
  3. CRESTOR [Concomitant]
     Active Substance: ROSUVASTATIN CALCIUM
  4. SOLUPRED [Concomitant]
     Active Substance: PREDNISOLONE
  5. AMLOR [Concomitant]
     Active Substance: AMLODIPINE BESYLATE
  6. JEVTANA [Suspect]
     Active Substance: CABAZITAXEL
     Indication: PROSTATE CANCER
     Route: 042
     Dates: start: 20170626, end: 20170626
  7. XGEVA [Concomitant]
     Active Substance: DENOSUMAB
     Route: 058

REACTIONS (2)
  - Diarrhoea [Recovered/Resolved]
  - Anal fissure [Recovered/Resolved]

NARRATIVE: CASE EVENT DATE: 20170701
